FAERS Safety Report 24047582 (Version 4)
Quarter: 2024Q3

REPORT INFORMATION
  Report Type: Spontaneous
  Country: US (occurrence: US)
  Receive Date: 20240703
  Receipt Date: 20240807
  Transmission Date: 20241016
  Serious: No
  Sender: JOHNSON AND JOHNSON
  Company Number: US-JNJFOC-20240678194

PATIENT
  Sex: Male

DRUGS (2)
  1. CONCERTA [Suspect]
     Active Substance: METHYLPHENIDATE HYDROCHLORIDE
     Indication: Attention deficit hyperactivity disorder
     Route: 048
     Dates: start: 20240628
  2. CONCERTA [Suspect]
     Active Substance: METHYLPHENIDATE HYDROCHLORIDE
     Indication: Psychomotor hyperactivity

REACTIONS (8)
  - Therapeutic product effect decreased [Unknown]
  - Dehydration [Unknown]
  - Intentional product use issue [Unknown]
  - Loss of personal independence in daily activities [Unknown]
  - Cognitive disorder [Unknown]
  - Asthenia [Unknown]
  - Blood pressure abnormal [Unknown]
  - Stress [Unknown]
